FAERS Safety Report 9973072 (Version 2)
Quarter: 2014Q1

REPORT INFORMATION
  Report Type: Spontaneous
  Country: US (occurrence: US)
  Receive Date: 20140306
  Receipt Date: 20140325
  Transmission Date: 20141002
  Serious: Yes (Other)
  Sender: FDA-Public Use
  Company Number: US-BRISTOL-MYERS SQUIBB COMPANY-20325577

PATIENT
  Age: 73 Year
  Sex: Male

DRUGS (12)
  1. ELIQUIS [Suspect]
     Indication: CEREBROVASCULAR ACCIDENT PROPHYLAXIS
     Dosage: RESTART:21?STOPED:04MAR14?DOSE REDUCED
     Dates: start: 20131219
  2. ASPIRIN [Suspect]
  3. CEMIDON [Concomitant]
  4. LATANOPROST [Concomitant]
  5. NORVASC [Concomitant]
  6. ZETIA [Concomitant]
  7. POTASSIUM CHLORIDE [Concomitant]
  8. COREG [Concomitant]
     Dosage: 1DF=5-12MG
  9. REGULIP [Concomitant]
  10. PRILOSEC [Concomitant]
  11. TRAMADOL [Concomitant]
  12. LORTAB [Concomitant]

REACTIONS (2)
  - Nephrolithiasis [Unknown]
  - Blood urine present [Not Recovered/Not Resolved]
